FAERS Safety Report 21202326 (Version 1)
Quarter: 2022Q3

REPORT INFORMATION
  Report Type: Spontaneous
  Country: US (occurrence: None)
  Receive Date: 20220811
  Receipt Date: 20220811
  Transmission Date: 20221026
  Serious: Yes (Other)
  Sender: FDA-Public Use
  Company Number: None

PATIENT
  Age: 43 Year
  Sex: Female
  Weight: 81 kg

DRUGS (2)
  1. LYRICA [Suspect]
     Active Substance: PREGABALIN
     Indication: Neuropathy peripheral
     Dosage: OTHER QUANTITY : 1 CAPSULE(S);?FREQUENCY : EVERY 8 HOURS;?
     Route: 048
     Dates: start: 20220101
  2. BACLOFEN [Suspect]
     Active Substance: BACLOFEN
     Indication: Muscle spasms
     Dosage: OTHER QUANTITY : 4 TABLET(S);?OTHER FREQUENCY : 2 MORNING, 2 NIGHT;?
     Route: 048
     Dates: start: 20220101

REACTIONS (6)
  - Feeling drunk [None]
  - Euphoric mood [None]
  - Fall [None]
  - Confusional state [None]
  - Gait disturbance [None]
  - Product use issue [None]

NARRATIVE: CASE EVENT DATE: 20220701
